FAERS Safety Report 4741956-7 (Version None)
Quarter: 2005Q3

REPORT INFORMATION
  Report Type: 
  Country: None (occurrence: None)
  Receive Date: 20050801
  Receipt Date: 20050613
  Transmission Date: 20060218
  Serious: No
  Sender: FDA-Public Use
  Company Number: 2005PV000036

PATIENT
  Age: 46 Year
  Sex: Male
  Weight: 136.0791 kg

DRUGS (10)
  1. BYETTA [Suspect]
     Indication: DIABETES MELLITUS NON-INSULIN-DEPENDENT
     Dosage: 5 UG;BID;SC
     Route: 058
     Dates: start: 20050606
  2. GLUCOVANCE [Concomitant]
  3. SYNTHROID [Concomitant]
  4. LEXAPRO [Concomitant]
  5. PRILOSEC [Concomitant]
  6. PROVIGIL [Concomitant]
  7. PLAVIX [Concomitant]
  8. TRICOR [Concomitant]
  9. FOLBEE [Concomitant]
  10. VICODIN [Concomitant]

REACTIONS (1)
  - DRUG INEFFECTIVE [None]
